FAERS Safety Report 25217645 (Version 4)
Quarter: 2025Q3

REPORT INFORMATION
  Report Type: Spontaneous
  Country: JP (occurrence: JP)
  Receive Date: 20250420
  Receipt Date: 20250912
  Transmission Date: 20251021
  Serious: Yes (Hospitalization, Other)
  Sender: GILEAD
  Company Number: JP-GILEAD-2025-0710756

PATIENT
  Age: 77 Year
  Sex: Female
  Weight: 38 kg

DRUGS (23)
  1. TRODELVY [Suspect]
     Active Substance: SACITUZUMAB GOVITECAN-HZIY
     Indication: Triple negative breast cancer
     Dosage: 300 MG, QD
     Route: 041
     Dates: start: 20250131, end: 20250328
  2. WARFARIN POTASSIUM [Concomitant]
     Active Substance: WARFARIN POTASSIUM
  3. AMLODIPINE\TELMISARTAN [Concomitant]
     Active Substance: AMLODIPINE\TELMISARTAN
  4. FAMOTIDINE [Concomitant]
     Active Substance: FAMOTIDINE
  5. NEORAL [Concomitant]
     Active Substance: CYCLOSPORINE
  6. PREDONINE [Concomitant]
     Active Substance: PREDNISOLONE
  7. GLICLAZIDE [Concomitant]
     Active Substance: GLICLAZIDE
  8. ATORVASTATIN [Concomitant]
     Active Substance: ATORVASTATIN
  9. REBAMIPIDE [Concomitant]
     Active Substance: REBAMIPIDE
  10. MOSAPRIDE CITRATE [Concomitant]
     Active Substance: MOSAPRIDE CITRATE
  11. PIRFENIDONE [Concomitant]
     Active Substance: PIRFENIDONE
     Route: 048
  12. PIRFENIDONE [Concomitant]
     Active Substance: PIRFENIDONE
     Route: 048
     Dates: start: 20250416
  13. MINODRONIC ACID [Concomitant]
     Active Substance: MINODRONIC ACID
  14. LEVOFLOXACIN HEMIHYDRATE [Concomitant]
     Active Substance: LEVOFLOXACIN
     Route: 048
     Dates: start: 20250403
  15. CALONAL [Concomitant]
     Active Substance: ACETAMINOPHEN
  16. MIYA-BM [Concomitant]
     Active Substance: CLOSTRIDIUM BUTYRICUM SPORES STRAIN M-55
  17. MAGNESIUM OXIDE [Concomitant]
     Active Substance: MAGNESIUM OXIDE
  18. PRIMPERAN [Concomitant]
     Active Substance: METOCLOPRAMIDE HYDROCHLORIDE
  19. LOXOPROFEN SODIUM [Concomitant]
     Active Substance: LOXOPROFEN SODIUM
  20. RINDERON VG [Concomitant]
     Active Substance: BETAMETHASONE VALERATE\GENTAMICIN SULFATE
  21. LOPERAMIDE HYDROCHLORIDE [Concomitant]
     Active Substance: LOPERAMIDE HYDROCHLORIDE
  22. CYCLOSPORINE [Concomitant]
     Active Substance: CYCLOSPORINE
     Route: 048
  23. CYCLOSPORINE [Concomitant]
     Active Substance: CYCLOSPORINE
     Route: 048
     Dates: start: 20250411, end: 20250415

REACTIONS (1)
  - Interstitial lung disease [Recovered/Resolved]

NARRATIVE: CASE EVENT DATE: 20250408
